FAERS Safety Report 20929565 (Version 1)
Quarter: 2022Q2

REPORT INFORMATION
  Report Type: Spontaneous
  Country: IN (occurrence: IN)
  Receive Date: 20220608
  Receipt Date: 20220608
  Transmission Date: 20220721
  Serious: Yes (Life-Threatening, Hospitalization)
  Sender: FDA-Public Use
  Company Number: IN-MACLEODS PHARMACEUTICALS US LTD-MAC2022035899

PATIENT

DRUGS (1)
  1. EFAVIRENZ\LAMIVUDINE\TENOFOVIR DISOPROXIL FUMARATE [Suspect]
     Active Substance: EFAVIRENZ\LAMIVUDINE\TENOFOVIR DISOPROXIL FUMARATE
     Indication: HIV infection
     Dosage: UNK, QD (TDF (300 MG), LAMIVUDINE (300 MG), AND EFAVIRENZ(600 MG)
     Route: 065

REACTIONS (10)
  - Pulmonary embolism [Recovering/Resolving]
  - Nephrolithiasis [Recovering/Resolving]
  - Nephropathy [Recovering/Resolving]
  - Pyelitis [Recovering/Resolving]
  - Hydronephrosis [Recovering/Resolving]
  - Urinary tract infection [Recovering/Resolving]
  - Acute kidney injury [Recovering/Resolving]
  - Fanconi syndrome [Recovering/Resolving]
  - Femoral neck fracture [Recovering/Resolving]
  - Osteomalacia [Recovering/Resolving]
